FAERS Safety Report 25433068 (Version 1)
Quarter: 2025Q2

REPORT INFORMATION
  Report Type: Spontaneous
  Country: US (occurrence: None)
  Receive Date: 20250613
  Receipt Date: 20250613
  Transmission Date: 20250716
  Serious: No
  Sender: MDD OPERATIONS
  Company Number: US-MDD US Operations-MDD202409-003265

PATIENT
  Sex: Female

DRUGS (1)
  1. APOKYN [Suspect]
     Active Substance: APOMORPHINE HYDROCHLORIDE
     Indication: Product used for unknown indication

REACTIONS (4)
  - Asthenia [Recovering/Resolving]
  - Hypotension [Recovering/Resolving]
  - Fatigue [Recovering/Resolving]
  - Dizziness [Recovering/Resolving]

NARRATIVE: CASE EVENT DATE: 20240830
